FAERS Safety Report 15348720 (Version 1)
Quarter: 2018Q3

REPORT INFORMATION
  Report Type: Spontaneous
  Country: DE (occurrence: DE)
  Receive Date: 20180904
  Receipt Date: 20180904
  Transmission Date: 20181010
  Serious: Yes (Hospitalization)
  Sender: FDA-Public Use
  Company Number: PHHY2017DE204687

PATIENT
  Age: 66 Year
  Sex: Female
  Weight: 79 kg

DRUGS (6)
  1. FALITHROM [Suspect]
     Active Substance: PHENPROCOUMON
     Dosage: 3 MG, PRN
     Route: 048
     Dates: start: 20161231
  2. ENOXAPARIN [Suspect]
     Active Substance: ENOXAPARIN
     Indication: CORONARY ARTERY DISEASE
     Dosage: 1.6 ML, QD
     Route: 058
     Dates: start: 20161212
  3. FALITHROM [Suspect]
     Active Substance: PHENPROCOUMON
     Indication: CORONARY ARTERY DISEASE
     Dosage: 3 MG, PRN
     Route: 048
     Dates: start: 20111117
  4. ACETYLSALICYLIC ACID [Suspect]
     Active Substance: ASPIRIN
     Dosage: 100 MG, QD
     Route: 048
     Dates: start: 20161231
  5. ENOXAPARIN [Suspect]
     Active Substance: ENOXAPARIN
     Dosage: 1.6 ML, QD
     Route: 058
     Dates: start: 20161231
  6. ACETYLSALICYLIC ACID [Suspect]
     Active Substance: ASPIRIN
     Indication: CORONARY ARTERY DISEASE
     Dosage: 100 MG, QD
     Route: 048
     Dates: start: 20041125

REACTIONS (2)
  - Breast haematoma [Recovered/Resolved]
  - Haematoma [Recovered/Resolved]

NARRATIVE: CASE EVENT DATE: 20161231
